FAERS Safety Report 5469993-8 (Version None)
Quarter: 2007Q3

REPORT INFORMATION
  Report Type: 
  Country: None (occurrence: None)
  Receive Date: 20070927
  Receipt Date: 20070111
  Transmission Date: 20080115
  Serious: No
  Sender: FDA-Public Use
  Company Number: US-AMGEN-KDL206556

PATIENT
  Sex: Female

DRUGS (5)
  1. NEUPOGEN [Suspect]
     Indication: NEUTROPENIA
  2. ACTONEL [Concomitant]
  3. ATENOLOL [Concomitant]
  4. GEMFIBROZIL [Concomitant]
  5. FELODIPINE [Concomitant]

REACTIONS (6)
  - CHILLS [None]
  - DIARRHOEA [None]
  - LETHARGY [None]
  - PAIN [None]
  - TREMOR [None]
  - VOMITING [None]
